FAERS Safety Report 8786267 (Version 1)
Quarter: 2012Q4

REPORT INFORMATION
  Report Type: Report from Study
  Country: US (occurrence: US)
  Receive Date: 20120914
  Receipt Date: 20120914
  Transmission Date: 20130627
  Serious: No
  Sender: FDA-Public Use
  Company Number: US-VERTEX PHARMACEUTICAL INC.-AE-2012-010413

PATIENT

DRUGS (12)
  1. INCIVEK [Suspect]
     Indication: HEPATITIS C
     Route: 048
     Dates: start: 20120629
  2. PEG-INTRON [Concomitant]
     Indication: HEPATITIS C
     Dates: start: 20120629
  3. RIBAVIRIN [Concomitant]
     Indication: HEPATITIS C
  4. ZOLOFT [Concomitant]
  5. BENADRYL [Concomitant]
  6. IBUPROFEN [Concomitant]
  7. PREPARATION H [Concomitant]
  8. MULTIVITAMIN [Concomitant]
  9. HYDROCORT [Concomitant]
  10. IMODIUM [Concomitant]
  11. VITAMIN B 12 [Concomitant]
  12. MILK THISTLE [Concomitant]

REACTIONS (8)
  - Headache [Unknown]
  - Decreased appetite [Unknown]
  - Rash [Unknown]
  - Diarrhoea [Unknown]
  - Vomiting [Unknown]
  - Proctalgia [Unknown]
  - Haemorrhoids [Unknown]
  - Pruritus generalised [Unknown]
